FAERS Safety Report 4888170-2 (Version None)
Quarter: 2006Q1

REPORT INFORMATION
  Report Type: 
  Country: None (occurrence: None)
  Receive Date: 20060119
  Receipt Date: 20060119
  Transmission Date: 20060701
  Serious: No
  Sender: FDA-Public Use
  Company Number: None

PATIENT
  Age: 50 Year
  Sex: Female
  Weight: 112.4921 kg

DRUGS (1)
  1. ALDARA [Suspect]
     Indication: CERVICAL DYSPLASIA
     Dosage: ON TAMPON 3X/WK X 3 MOS INTRA-VAGINAL
     Route: 067

REACTIONS (1)
  - NO ADVERSE DRUG EFFECT [None]
